FAERS Safety Report 9295451 (Version 1)
Quarter: 2013Q1

REPORT INFORMATION
  Report Type: Spontaneous
  Country: US (occurrence: None)
  Receive Date: 20121227
  Receipt Date: 20121227
  Transmission Date: 20140127
  Serious: No
  Sender: FDA-Public Use
  Company Number: PHEH2012US020300

PATIENT
  Age: 80 Year
  Sex: Male
  Weight: 172 kg

DRUGS (1)
  1. AFINITOR [Suspect]
     Indication: RENAL NEOPLASM
     Route: 048

REACTIONS (1)
  - Arthralgia [None]
